FAERS Safety Report 20172472 (Version 1)
Quarter: 2021Q4

REPORT INFORMATION
  Report Type: Spontaneous
  Country: US (occurrence: US)
  Receive Date: 20211210
  Receipt Date: 20211210
  Transmission Date: 20220303
  Serious: Yes (Other)
  Sender: FDA-Public Use
  Company Number: US-SUNOVION-2021SUN004567

PATIENT
  Sex: Female

DRUGS (1)
  1. LEVALBUTEROL TARTRATE [Suspect]
     Active Substance: LEVALBUTEROL TARTRATE
     Dosage: 45 ?G
     Route: 055

REACTIONS (4)
  - Choking [Unknown]
  - Device difficult to use [Unknown]
  - Device issue [Unknown]
  - Incorrect dose administered [Unknown]
